FAERS Safety Report 15994089 (Version 2)
Quarter: 2019Q1

REPORT INFORMATION
  Report Type: Report from Study
  Country: CA (occurrence: CA)
  Receive Date: 20190222
  Receipt Date: 20190308
  Transmission Date: 20190418
  Serious: Yes (Hospitalization)
  Sender: FDA-Public Use
  Company Number: CA-ACTELION-A-CH2019-185780

PATIENT
  Age: 65 Year
  Sex: Female

DRUGS (21)
  1. ADCIRCA [Suspect]
     Active Substance: TADALAFIL
     Dosage: 40 MG, OD
     Route: 048
     Dates: start: 20181208
  2. IPRATROPIUM [Concomitant]
     Active Substance: IPRATROPIUM
     Dosage: UNK, QID
     Route: 045
  3. DEXLANSOPRAZOLE [Concomitant]
     Active Substance: DEXLANSOPRAZOLE
     Dosage: 60 MG, QD
     Route: 048
     Dates: start: 201701
  4. FOLIC ACID. [Concomitant]
     Active Substance: FOLIC ACID
     Dosage: 5 MG, QD
     Route: 048
     Dates: start: 2017
  5. OSCAL [Concomitant]
     Active Substance: CALCIUM CARBONATE
     Dosage: 1250 MG, BID
     Route: 048
  6. AMOXICILLIN SODIUM W/CLAVULANATE POTASSIUM [Concomitant]
     Active Substance: AMOXICILLIN\CLAVULANATE POTASSIUM
     Indication: PROPHYLAXIS
     Dosage: UNK
     Dates: start: 20190130, end: 20190213
  7. SELEXIPAG [Suspect]
     Active Substance: SELEXIPAG
     Dosage: 200 MCG, BID
     Route: 048
     Dates: start: 20181217, end: 20181224
  8. SELEXIPAG [Suspect]
     Active Substance: SELEXIPAG
     Dosage: UNK
     Route: 048
     Dates: end: 20190211
  9. ADCIRCA [Suspect]
     Active Substance: TADALAFIL
     Indication: PULMONARY ARTERIAL HYPERTENSION
     Dosage: 20 MG, OD
     Route: 048
     Dates: start: 20181130, end: 20181207
  10. BECLOMETHASONE DIPROPIONATE [Concomitant]
     Active Substance: BECLOMETHASONE DIPROPIONATE
     Dosage: UNK, BID
     Route: 045
  11. OXYGEN. [Concomitant]
     Active Substance: OXYGEN
     Dosage: 5 L, PER MIN
     Route: 055
  12. ZOPICLONE [Concomitant]
     Active Substance: ZOPICLONE
     Dosage: 2.5 MG
     Route: 048
  13. VITAMIN D [Concomitant]
     Active Substance: CHOLECALCIFEROL
     Dosage: 2000 IU, QD
     Route: 048
  14. SELEXIPAG [Suspect]
     Active Substance: SELEXIPAG
     Indication: PULMONARY ARTERIAL HYPERTENSION
     Dosage: 1200 MCG, BID
     Route: 048
     Dates: start: 20180121, end: 20190205
  15. AMLODIPINE [Concomitant]
     Active Substance: AMLODIPINE BESYLATE
     Indication: RAYNAUD^S PHENOMENON
     Dosage: 5 MG, QD
     Route: 048
     Dates: start: 2017
  16. PREDNISONE. [Concomitant]
     Active Substance: PREDNISONE
     Indication: INTERSTITIAL LUNG DISEASE
     Dosage: 40 MG, QD
     Dates: start: 20190205
  17. OXYGEN. [Concomitant]
     Active Substance: OXYGEN
     Indication: DEPENDENCE ON OXYGEN THERAPY
     Dosage: 7-8 L, PER MIN
     Route: 055
  18. SEPTRA [Concomitant]
     Active Substance: SULFAMETHOXAZOLE\TRIMETHOPRIM
     Indication: ANTIFUNGAL PROPHYLAXIS
     Dosage: 1 DF, QD
     Route: 048
  19. MACITENTAN [Suspect]
     Active Substance: MACITENTAN
     Indication: PULMONARY ARTERIAL HYPERTENSION
     Dosage: 10 MG, OD
     Route: 048
     Dates: start: 20181130
  20. METHOTREXATE. [Suspect]
     Active Substance: METHOTREXATE
     Indication: PRODUCT USED FOR UNKNOWN INDICATION
     Dosage: UNK
     Route: 048
     Dates: start: 201706
  21. SECARIS [Concomitant]
     Active Substance: PROPYLENE GLYCOL
     Dosage: UNK, PRN
     Route: 045

REACTIONS (23)
  - Pulmonary oedema [Recovering/Resolving]
  - Pulmonary veno-occlusive disease [Recovering/Resolving]
  - Rhinorrhoea [Recovering/Resolving]
  - Lung disorder [Recovering/Resolving]
  - Otitis media [Recovering/Resolving]
  - Respiratory tract infection [Recovering/Resolving]
  - Oedema peripheral [Recovering/Resolving]
  - Fluid overload [Recovering/Resolving]
  - Dyspnoea [Not Recovered/Not Resolved]
  - Respiratory failure [Recovering/Resolving]
  - Pericardial effusion [Recovering/Resolving]
  - Middle ear effusion [Recovering/Resolving]
  - Chills [Recovering/Resolving]
  - Right ventricular failure [Recovering/Resolving]
  - Pleural effusion [Recovering/Resolving]
  - Headache [Recovering/Resolving]
  - Cardiac dysfunction [Recovering/Resolving]
  - Dependence on oxygen therapy [Recovering/Resolving]
  - Pulmonary arterial hypertension [Not Recovered/Not Resolved]
  - Fluid retention [Recovering/Resolving]
  - Deafness bilateral [Recovering/Resolving]
  - Disease progression [Not Recovered/Not Resolved]
  - Nasal congestion [Recovering/Resolving]

NARRATIVE: CASE EVENT DATE: 20181201
